FAERS Safety Report 13061804 (Version 2)
Quarter: 2017Q1

REPORT INFORMATION
  Report Type: Spontaneous
  Country: IR (occurrence: IR)
  Receive Date: 20161226
  Receipt Date: 20170131
  Transmission Date: 20170428
  Serious: Yes (Other)
  Sender: FDA-Public Use
  Company Number: IR-SUN PHARMACEUTICAL INDUSTRIES LTD-2016R1-130148

PATIENT
  Sex: Female

DRUGS (2)
  1. LETROZOLE. [Suspect]
     Active Substance: LETROZOLE
     Indication: INFERTILITY
  2. LETROZOLE. [Suspect]
     Active Substance: LETROZOLE
     Indication: OVULATION INDUCTION
     Dosage: UNK
     Route: 065
     Dates: start: 201311, end: 2014

REACTIONS (2)
  - Treatment failure [Recovered/Resolved]
  - Ovarian cyst ruptured [Recovered/Resolved]
